FAERS Safety Report 13540677 (Version 3)
Quarter: 2017Q2

REPORT INFORMATION
  Report Type: Report from Study
  Country: US (occurrence: US)
  Receive Date: 20170512
  Receipt Date: 20170609
  Transmission Date: 20170830
  Serious: Yes (Death, Hospitalization, Other)
  Sender: FDA-Public Use
  Company Number: US-GILEAD-2017-0265421

PATIENT
  Age: 68 Year
  Sex: Female
  Weight: 56.7 kg

DRUGS (16)
  1. CELLCEPT [Concomitant]
     Active Substance: MYCOPHENOLATE MOFETIL\MYCOPHENOLATE MOFETIL HYDROCHLORIDE
  2. AMBRISENTAN [Suspect]
     Active Substance: AMBRISENTAN
     Indication: PRODUCT USED FOR UNKNOWN INDICATION
     Dosage: 10 MG, QD
     Route: 065
     Dates: start: 20110509
  3. TYLENOL [Concomitant]
     Active Substance: ACETAMINOPHEN
  4. PROTONIX                           /00661201/ [Concomitant]
     Active Substance: OMEPRAZOLE
  5. PRAMOXINE/HYDROCORTISONE [Concomitant]
  6. ADCIRCA [Concomitant]
     Active Substance: TADALAFIL
  7. ALPHAGAN P [Concomitant]
     Active Substance: BRIMONIDINE TARTRATE
  8. SYNTHROID [Concomitant]
     Active Substance: LEVOTHYROXINE SODIUM
  9. REMODULIN [Suspect]
     Active Substance: TREPROSTINIL
     Indication: PRODUCT USED FOR UNKNOWN INDICATION
     Route: 042
  10. LUMIGAN [Concomitant]
     Active Substance: BIMATOPROST
  11. PAXIL [Concomitant]
     Active Substance: PAROXETINE HYDROCHLORIDE
  12. ALDACTONE [Concomitant]
     Active Substance: SPIRONOLACTONE
  13. DILTIAZEM. [Concomitant]
     Active Substance: DILTIAZEM
  14. TIMOLOL MALEATE. [Concomitant]
     Active Substance: TIMOLOL MALEATE
  15. SODIUM CHLORIDE. [Concomitant]
     Active Substance: SODIUM CHLORIDE
  16. VENOFER [Concomitant]
     Active Substance: IRON SUCROSE

REACTIONS (12)
  - Malaise [Not Recovered/Not Resolved]
  - Fluid retention [Unknown]
  - Abscess [Unknown]
  - Unevaluable event [Unknown]
  - Injection site infection [Unknown]
  - Hypertension [Unknown]
  - Dyspnoea [Not Recovered/Not Resolved]
  - Injection site swelling [Unknown]
  - Injection site erythema [Recovering/Resolving]
  - Injection site induration [Unknown]
  - Death [Fatal]
  - Pleural effusion [Unknown]

NARRATIVE: CASE EVENT DATE: 20170514
